FAERS Safety Report 18054929 (Version 1)
Quarter: 2020Q3

REPORT INFORMATION
  Report Type: Spontaneous
  Country: US (occurrence: US)
  Receive Date: 20200722
  Receipt Date: 20200722
  Transmission Date: 20201103
  Serious: Yes (Hospitalization, Other)
  Sender: FDA-Public Use
  Company Number: US-BRISTOL-MYERS SQUIBB COMPANY-BMS-2020-057278

PATIENT
  Sex: Female
  Weight: 84 kg

DRUGS (1)
  1. ELIQUIS [Suspect]
     Active Substance: APIXABAN
     Indication: PRODUCT USED FOR UNKNOWN INDICATION
     Dosage: UNK
     Route: 065

REACTIONS (7)
  - Inability to afford medication [Unknown]
  - Arthropathy [Unknown]
  - Body height decreased [Unknown]
  - Fall [Unknown]
  - Dyspnoea [Unknown]
  - Lacrimal disorder [Unknown]
  - Dizziness [Unknown]
